FAERS Safety Report 5975804-4 (Version None)
Quarter: 2008Q4

REPORT INFORMATION
  Report Type: 
  Country: None (occurrence: None)
  Receive Date: 20081202
  Receipt Date: 20081126
  Transmission Date: 20090506
  Serious: Yes (Hospitalization)
  Sender: FDA-Public Use
  Company Number: A0758256A

PATIENT
  Age: 36 Year
  Sex: Female

DRUGS (2)
  1. ALLI [Suspect]
     Route: 048
  2. KLONOPIN [Concomitant]
     Route: 048

REACTIONS (13)
  - ABDOMINAL PAIN UPPER [None]
  - ABORTION INDUCED [None]
  - ANXIETY [None]
  - BACK PAIN [None]
  - CHOLELITHIASIS [None]
  - DIARRHOEA [None]
  - DRUG EXPOSURE DURING PREGNANCY [None]
  - FREQUENT BOWEL MOVEMENTS [None]
  - GALLBLADDER DISORDER [None]
  - GASTRIC PERFORATION [None]
  - IRRITABLE BOWEL SYNDROME [None]
  - MALAISE [None]
  - PAIN [None]
